FAERS Safety Report 4836750-2 (Version None)
Quarter: 2005Q4

REPORT INFORMATION
  Report Type: 
  Country: None (occurrence: None)
  Receive Date: 20051123
  Receipt Date: 20051114
  Transmission Date: 20060501
  Serious: Yes (Other)
  Sender: FDA-Public Use
  Company Number: US-ABBOTT-05P-163-0317190-00

PATIENT
  Sex: Female
  Weight: 73.548 kg

DRUGS (6)
  1. HUMIRA [Suspect]
     Indication: RHEUMATOID ARTHRITIS
     Route: 058
     Dates: start: 20041001
  2. METHOTREXATE [Concomitant]
     Indication: RHEUMATOID ARTHRITIS
     Route: 048
     Dates: start: 20020101, end: 20050101
  3. METHOTREXATE [Concomitant]
     Route: 048
     Dates: start: 20051001
  4. HYDROXYCHLOROQUINE PHOSPHATE [Concomitant]
     Indication: RHEUMATOID ARTHRITIS
     Route: 048
  5. PREDNISONE [Concomitant]
     Indication: RHEUMATOID ARTHRITIS
     Route: 048
     Dates: end: 20051014
  6. BIMATOPROST [Concomitant]
     Indication: GLAUCOMA
     Route: 031
     Dates: start: 20041001

REACTIONS (5)
  - INTRAOCULAR PRESSURE INCREASED [None]
  - IRITIS [None]
  - OCULAR HYPERAEMIA [None]
  - ULCERATIVE KERATITIS [None]
  - VISUAL ACUITY REDUCED [None]
